FAERS Safety Report 10221252 (Version 1)
Quarter: 2014Q2

REPORT INFORMATION
  Report Type: Spontaneous
  Country: US (occurrence: US)
  Receive Date: 20140606
  Receipt Date: 20140606
  Transmission Date: 20141212
  Serious: No
  Sender: FDA-Public Use
  Company Number: US-GLAXOSMITHKLINE-A1068890A

PATIENT
  Age: 71 Year
  Sex: Female

DRUGS (5)
  1. BREO ELLIPTA [Suspect]
     Indication: CHRONIC OBSTRUCTIVE PULMONARY DISEASE
     Dosage: 1PUFF UNKNOWN
     Route: 055
     Dates: start: 201403
  2. CARDIAZEM [Concomitant]
  3. DALIRESP [Concomitant]
  4. SPIRIVA [Concomitant]
  5. SINGULAIR [Concomitant]

REACTIONS (2)
  - Lung hyperinflation [Not Recovered/Not Resolved]
  - Dyspnoea [Unknown]
